FAERS Safety Report 23645437 (Version 1)
Quarter: 2024Q1

REPORT INFORMATION
  Report Type: Spontaneous
  Country: US (occurrence: US)
  Receive Date: 20240318
  Receipt Date: 20240318
  Transmission Date: 20240409
  Serious: Yes (Other)
  Sender: FDA-Public Use
  Company Number: US-MALLINCKRODT-MNK202401809

PATIENT
  Age: 79 Year
  Sex: Female
  Weight: 177 kg

DRUGS (17)
  1. CORTICOTROPIN [Suspect]
     Active Substance: CORTICOTROPIN
     Indication: Pulmonary arterial hypertension
     Dosage: 40 UNITS
     Route: 058
  2. MIRTAZAPINE [Concomitant]
     Active Substance: MIRTAZAPINE
  3. ZETIA [Concomitant]
     Active Substance: EZETIMIBE
     Dosage: UNKNOWN
  4. OPSUMIT [Concomitant]
     Active Substance: MACITENTAN
     Dosage: UNKNOWN
  5. DEXILANT [Concomitant]
     Active Substance: DEXLANSOPRAZOLE
  6. SPIRONOLACTONE [Concomitant]
     Active Substance: SPIRONOLACTONE
  7. TORSEMIDE [Concomitant]
     Active Substance: TORSEMIDE
  8. PRAVASTATIN SODIUM [Concomitant]
     Active Substance: PRAVASTATIN SODIUM
  9. SYNTHROID [Concomitant]
     Active Substance: LEVOTHYROXINE SODIUM
  10. LEVOTHYROXINE [Concomitant]
     Active Substance: LEVOTHYROXINE\LEVOTHYROXINE SODIUM
  11. DIOVAN [Concomitant]
     Active Substance: VALSARTAN
     Dosage: UNKNOWN
  12. NORVASC [Concomitant]
     Active Substance: AMLODIPINE BESYLATE
  13. OXYGEN [Concomitant]
     Active Substance: OXYGEN
     Dosage: UNKNOWN
  14. TRACLEER [Concomitant]
     Active Substance: BOSENTAN
  15. TRACLEER [Concomitant]
     Active Substance: BOSENTAN
  16. TRACLEER [Concomitant]
     Active Substance: BOSENTAN
     Dosage: UNKNOWN
  17. LEXAPRO [Concomitant]
     Active Substance: ESCITALOPRAM OXALATE

REACTIONS (2)
  - Anal cancer [Unknown]
  - Product use in unapproved indication [Unknown]

NARRATIVE: CASE EVENT DATE: 20240306
